FAERS Safety Report 5959175-5 (Version None)
Quarter: 2008Q4

REPORT INFORMATION
  Report Type: 
  Country: None (occurrence: None)
  Receive Date: 20081120
  Receipt Date: 20080506
  Transmission Date: 20090506
  Serious: No
  Sender: FDA-Public Use
  Company Number: A0726574A

PATIENT
  Age: 60 Year
  Sex: Female

DRUGS (5)
  1. WELLBUTRIN SR [Suspect]
     Indication: DEPRESSION
     Dosage: 375MG PER DAY
     Route: 048
     Dates: start: 20080414
  2. NAMENDA [Concomitant]
  3. ARMOUR THYROID [Concomitant]
  4. VITAMINS [Concomitant]
  5. UNKNOWN MEDICATION [Concomitant]

REACTIONS (2)
  - DEPRESSION [None]
  - PAIN [None]
